FAERS Safety Report 17556053 (Version 1)
Quarter: 2020Q1

REPORT INFORMATION
  Report Type: Spontaneous
  Country: DE (occurrence: DE)
  Receive Date: 20200318
  Receipt Date: 20200318
  Transmission Date: 20200409
  Serious: Yes (Death, Other)
  Sender: FDA-Public Use
  Company Number: DE-PFIZER INC-2020116076

PATIENT
  Sex: Female
  Weight: 62 kg

DRUGS (2)
  1. CYTOTEC [Suspect]
     Active Substance: MISOPROSTOL
     Indication: PRE-ECLAMPSIA
     Dosage: 100 UG, 3X/DAY
     Route: 048
     Dates: start: 20150322, end: 20150322
  2. CYTOTEC [Suspect]
     Active Substance: MISOPROSTOL
     Indication: LABOUR INDUCTION
     Dosage: 50 UG, DAILY
     Route: 048
     Dates: start: 20150321, end: 20150321

REACTIONS (17)
  - Circulatory collapse [Fatal]
  - Uterine atony [Not Recovered/Not Resolved]
  - Product use in unapproved indication [Unknown]
  - Intra-abdominal haemorrhage [Fatal]
  - Post procedural haemorrhage [Not Recovered/Not Resolved]
  - Cardiac failure [Not Recovered/Not Resolved]
  - Disseminated intravascular coagulation [Not Recovered/Not Resolved]
  - Uterine tachysystole [Not Recovered/Not Resolved]
  - Off label use [Unknown]
  - Uterine rupture [Not Recovered/Not Resolved]
  - Coagulopathy [Not Recovered/Not Resolved]
  - Multiple organ dysfunction syndrome [Fatal]
  - Procedural haemorrhage [Not Recovered/Not Resolved]
  - HELLP syndrome [Unknown]
  - Placenta accreta [Not Recovered/Not Resolved]
  - Pulmonary embolism [Not Recovered/Not Resolved]
  - Anuria [Not Recovered/Not Resolved]

NARRATIVE: CASE EVENT DATE: 2015
